FAERS Safety Report 8796531 (Version 2)
Quarter: 2012Q4

REPORT INFORMATION
  Report Type: 
  Country: US (occurrence: US)
  Receive Date: 20120919
  Receipt Date: 20121012
  Transmission Date: 20130627
  Serious: Yes (Death, Hospitalization)
  Sender: FDA-Public Use
  Company Number: US-BAXTER-2012BAX017214

PATIENT
  Age: 82 Year
  Sex: Male

DRUGS (3)
  1. DIANEAL LOW CALCIUM [Suspect]
     Indication: PERITONEAL DIALYSIS
     Route: 033
     Dates: end: 20120912
  2. DIANEAL LOW CALCIUM [Suspect]
     Indication: PERITONEAL DIALYSIS
     Route: 033
     Dates: end: 20120912
  3. EXTRANEAL [Suspect]
     Indication: PERITONEAL DIALYSIS
     Route: 033
     Dates: end: 20120912

REACTIONS (6)
  - Sepsis [Fatal]
  - Fungal peritonitis [Fatal]
  - Peritonitis bacterial [Fatal]
  - Cellulitis [Unknown]
  - Localised infection [Unknown]
  - Peritoneal dialysis complication [Unknown]
